FAERS Safety Report 11792569 (Version 6)
Quarter: 2016Q4

REPORT INFORMATION
  Report Type: Report from Study
  Country: EG (occurrence: EG)
  Receive Date: 20151202
  Receipt Date: 20161226
  Transmission Date: 20170206
  Serious: Yes (Other)
  Sender: FDA-Public Use
  Company Number: EG-ROCHE-1670836

PATIENT

DRUGS (2)
  1. RIBAVIRIN. [Suspect]
     Active Substance: RIBAVIRIN
     Indication: CHRONIC HEPATITIS C
     Dosage: WEIGHT BASED DOSE (1000 MG DAILY IF BODYWEIGHT {75 KG, 1200 MG DAILY IF BODYWEIGHT }/=75 KG) FOR 12
     Route: 065
  2. OMBITASVIR/PARITAPREVIR/RITONAVIR [Suspect]
     Active Substance: OMBITASVIR\PARITAPREVIR\RITONAVIR
     Indication: CHRONIC HEPATITIS C
     Dosage: (25 MG/150 MG/100 MG)
     Route: 048

REACTIONS (1)
  - Deep vein thrombosis [Unknown]
